FAERS Safety Report 18931868 (Version 2)
Quarter: 2022Q1

REPORT INFORMATION
  Report Type: Spontaneous
  Country: US (occurrence: US)
  Receive Date: 20210224
  Receipt Date: 20220111
  Transmission Date: 20220424
  Serious: Yes (Other)
  Sender: FDA-Public Use
  Company Number: US-009507513-1805USA005880

PATIENT
  Sex: Male
  Weight: 206 kg

DRUGS (8)
  1. ZOSTAVAX [Suspect]
     Active Substance: VARICELLA-ZOSTER VIRUS STRAIN OKA/MERCK LIVE ANTIGEN
     Indication: Prophylaxis
     Dosage: .65 MILLILITER
     Route: 058
     Dates: start: 20141112, end: 20141112
  2. PNEUMOVAX 23 [Suspect]
     Active Substance: PNEUMOCOCCAL VACCINE, POLYVALENT 23
     Indication: Prophylaxis
     Dates: start: 20140710
  3. PNEUMOVAX 23 [Suspect]
     Active Substance: PNEUMOCOCCAL VACCINE, POLYVALENT 23
     Dates: start: 201608
  4. PRINIVIL [Suspect]
     Active Substance: LISINOPRIL
     Indication: Essential hypertension
     Dosage: 40 MILLIGRAM, 2X PER DAY
     Route: 048
     Dates: start: 2015
  5. ONGLYZA [SAXAGLIPTIN HYDROCHLORIDE] [Concomitant]
     Indication: Type 2 diabetes mellitus
     Dosage: 5 MILLIGRAM, 1X PER DAY
     Route: 048
     Dates: start: 2010
  6. PRAVASTATIN [Concomitant]
     Active Substance: PRAVASTATIN
     Indication: Hyperlipidaemia
     Dosage: 40 MILLIGRAM, 1X PER DAY (AT BEDTIME)
     Route: 048
     Dates: start: 2010
  7. OMEPRAZOLE [Concomitant]
     Active Substance: OMEPRAZOLE
     Indication: Gastrointestinal disorder
     Dosage: 20 MILLIGRAM, 1 PILL AS PER NEEDED
     Dates: start: 2011
  8. FUROSEMIDE [Concomitant]
     Active Substance: FUROSEMIDE
     Indication: Fluid retention
     Dosage: 40 MILLIGRAM, 1X IN THE MORNING
     Dates: start: 2011

REACTIONS (31)
  - Herpes zoster disseminated [Unknown]
  - Cataract [Unknown]
  - Lower gastrointestinal haemorrhage [Unknown]
  - Nephrolithiasis [Unknown]
  - Coronary arterial stent insertion [Unknown]
  - Ventricular hypokinesia [Unknown]
  - Vaccination failure [Unknown]
  - Hepatic steatosis [Unknown]
  - Osteoarthritis [Unknown]
  - Anaemia [Unknown]
  - Cerebrovascular disorder [Unknown]
  - Dysphagia [Unknown]
  - Obesity [Unknown]
  - Tinea pedis [Unknown]
  - Vitamin D deficiency [Unknown]
  - Dermatophytosis of nail [Unknown]
  - Arteriosclerosis [Unknown]
  - Hernia [Unknown]
  - Heart rate irregular [Unknown]
  - Anxiety [Unknown]
  - Depression [Unknown]
  - Adjustment disorder [Unknown]
  - Prostatic disorder [Unknown]
  - Thyroid disorder [Unknown]
  - Herpes zoster [Recovered/Resolved]
  - Inappropriate schedule of product administration [Unknown]
  - Inappropriate schedule of product administration [Unknown]
  - Learning disorder [Unknown]
  - Impaired self-care [Unknown]
  - Visual impairment [Unknown]
  - Hypoacusis [Unknown]

NARRATIVE: CASE EVENT DATE: 20150101
